FAERS Safety Report 23328385 (Version 1)
Quarter: 2023Q4

REPORT INFORMATION
  Report Type: Report from Study
  Country: US (occurrence: US)
  Receive Date: 20231221
  Receipt Date: 20231221
  Transmission Date: 20240110
  Serious: Yes (Hospitalization, Other)
  Sender: FDA-Public Use
  Company Number: US-GILEAD-2023-0655721

PATIENT
  Age: 53 Year
  Sex: Male

DRUGS (6)
  1. AZTREONAM LYSINE [Suspect]
     Active Substance: AZTREONAM LYSINE
     Indication: Cystic fibrosis
     Dosage: RECONSTITUTE WITH PROVIDED DILUENT AND INHALE THE CONTENTS OF 1 VIAL VIA PARI ALTERA NEBULIZER 3 TIM
     Route: 055
     Dates: start: 202202
  2. AZTREONAM LYSINE [Suspect]
     Active Substance: AZTREONAM LYSINE
     Indication: Cystic fibrosis lung
  3. PULMOZYME [Concomitant]
     Active Substance: DORNASE ALFA
     Indication: Cystic fibrosis
     Dosage: 2.5 MG, BID
     Route: 055
     Dates: start: 201706
  4. PULMOZYME [Concomitant]
     Active Substance: DORNASE ALFA
     Indication: Cystic fibrosis lung
  5. COLISTIMETHATE SODIUM [Concomitant]
     Active Substance: COLISTIMETHATE SODIUM
     Indication: Cystic fibrosis
     Dosage: 2ML STERILE WATER EACH VIAL 2ML NEBULIZE TWO TIMES DAILY ALTERNATE WITH 28 DAYS ON 28 DAYS OFF
     Route: 065
     Dates: start: 202201
  6. COLISTIMETHATE SODIUM [Concomitant]
     Active Substance: COLISTIMETHATE SODIUM
     Indication: Cystic fibrosis lung

REACTIONS (1)
  - Cystic fibrosis [Unknown]
